FAERS Safety Report 5021166-9 (Version None)
Quarter: 2006Q2

REPORT INFORMATION
  Report Type: 
  Country: None (occurrence: None)
  Receive Date: 20060608
  Receipt Date: 20060531
  Transmission Date: 20061013
  Serious: Yes (Hospitalization)
  Sender: FDA-Public Use
  Company Number: 2006AP02523

PATIENT
  Age: 71 Year
  Sex: Female

DRUGS (2)
  1. ARIMIDEX [Suspect]
     Indication: BREAST CANCER
     Route: 048
     Dates: start: 20051128, end: 20060126
  2. UFT [Suspect]
     Indication: BREAST CANCER
     Route: 048
     Dates: start: 20051128, end: 20060126

REACTIONS (1)
  - HEPATIC FUNCTION ABNORMAL [None]
